FAERS Safety Report 10063573 (Version 2)
Quarter: 2014Q2

REPORT INFORMATION
  Report Type: Report from Study
  Country: IL (occurrence: IL)
  Receive Date: 20140407
  Receipt Date: 20140407
  Transmission Date: 20141212
  Serious: Yes (Other)
  Sender: FDA-Public Use
  Company Number: PHHY2013IL009180

PATIENT
  Sex: Male

DRUGS (3)
  1. SANDOSTATIN LAR [Suspect]
     Indication: CARCINOID TUMOUR
     Dosage: 30 MG, Q4 WEEKS
     Route: 030
     Dates: start: 20120123
  2. SANDOSTATIN LAR [Suspect]
     Dosage: 30 MG, Q4 WEEKS
     Route: 030
     Dates: start: 20130130
  3. SANDOSTATIN LAR [Suspect]
     Dosage: 30 MG, Q4 WEEKS
     Route: 030
     Dates: start: 20140326

REACTIONS (3)
  - Intervertebral disc protrusion [Unknown]
  - Malignant neoplasm progression [Unknown]
  - Back pain [Unknown]
